FAERS Safety Report 9231825 (Version 1)
Quarter: 2013Q2

REPORT INFORMATION
  Report Type: Spontaneous
  Country: FR (occurrence: FR)
  Receive Date: 20130415
  Receipt Date: 20130415
  Transmission Date: 20140414
  Serious: Yes (Life-Threatening, Other)
  Sender: FDA-Public Use
  Company Number: FR-ASTRAZENECA-2013SE23386

PATIENT
  Age: 78 Year
  Sex: Male

DRUGS (8)
  1. PROPOFOL [Suspect]
     Route: 042
  2. REMIFENTANIL [Suspect]
  3. HALOPERIDOL [Suspect]
  4. VORICONAZOLE [Suspect]
     Indication: BRONCHOPULMONARY ASPERGILLOSIS
     Dosage: 400 MG TWICE A DAY
  5. VORICONAZOLE [Suspect]
     Indication: BRONCHOPULMONARY ASPERGILLOSIS
     Dosage: 300 MG TWICE A DAY
     Route: 042
  6. PIPERACILLIN-TAZOBACTAM [Concomitant]
  7. GABAPENTIN [Concomitant]
  8. NEFOPAM [Concomitant]

REACTIONS (3)
  - Bradycardia [Recovered/Resolved]
  - Atrioventricular block complete [Recovered/Resolved]
  - Electrocardiogram QT prolonged [Recovered/Resolved]
